FAERS Safety Report 7414804-4 (Version None)
Quarter: 2011Q2

REPORT INFORMATION
  Report Type: 
  Country: None (occurrence: None)
  Receive Date: 20110414
  Receipt Date: 20100831
  Transmission Date: 20111010
  Serious: No
  Sender: FDA-Public Use
  Company Number: A0878681A

PATIENT
  Age: 65 Year
  Sex: Female

DRUGS (9)
  1. LUXIQ [Suspect]
     Indication: LICHEN PLANUS
     Dosage: 1APP PER DAY
     Route: 061
     Dates: start: 20100816, end: 20100920
  2. CRANBERRY [Concomitant]
  3. PRAVASTATIN [Concomitant]
  4. MULTI-VITAMIN [Concomitant]
  5. KEFLEX [Concomitant]
  6. CALCIUM [Concomitant]
  7. CARVEDILOL [Concomitant]
  8. ENALAPRIL MALEATE [Concomitant]
  9. DIGOXIN [Concomitant]

REACTIONS (1)
  - PRURITUS [None]
